FAERS Safety Report 4572433-4 (Version None)
Quarter: 2005Q1

REPORT INFORMATION
  Report Type: 
  Country: None (occurrence: None)
  Receive Date: 20050207
  Receipt Date: 20050117
  Transmission Date: 20050727
  Serious: Yes (Death, Life-Threatening)
  Sender: FDA-Public Use
  Company Number: MM-GLAXOSMITHKLINE-B0369862A

PATIENT
  Age: 4 Year
  Sex: Female
  Weight: 22 kg

DRUGS (2)
  1. ALBENDAZOLE [Suspect]
     Dates: start: 20050111
  2. DIETHYLCARBAMAZINE [Suspect]
     Dates: start: 20050111

REACTIONS (7)
  - APNOEA [None]
  - ASPHYXIA [None]
  - CHOKING [None]
  - CYANOSIS [None]
  - DEATH [None]
  - LOSS OF CONSCIOUSNESS [None]
  - PULSE PRESSURE DECREASED [None]
